FAERS Safety Report 17962558 (Version 1)
Quarter: 2020Q2

REPORT INFORMATION
  Report Type: Spontaneous
  Country: US (occurrence: US)
  Receive Date: 20200629
  Receipt Date: 20200629
  Transmission Date: 20200714
  Serious: Yes (Other)
  Sender: FDA-Public Use
  Company Number: None

PATIENT
  Age: 21 Year
  Sex: Female
  Weight: 86.18 kg

DRUGS (4)
  1. SPRINTEC [Concomitant]
     Active Substance: ETHINYL ESTRADIOL\NORGESTIMATE
  2. HUMIRA [Concomitant]
     Active Substance: ADALIMUMAB
  3. NEXPLANON [Suspect]
     Active Substance: ETONOGESTREL
     Dates: start: 20150914
  4. VITAMIN D3 [Concomitant]
     Active Substance: CHOLECALCIFEROL

REACTIONS (2)
  - Embedded device [None]
  - Implantation complication [None]

NARRATIVE: CASE EVENT DATE: 20150914
